FAERS Safety Report 12866272 (Version 6)
Quarter: 2018Q3

REPORT INFORMATION
  Report Type: Report from Study
  Country: DE (occurrence: DE)
  Receive Date: 20161020
  Receipt Date: 20180726
  Transmission Date: 20181010
  Serious: Yes (Hospitalization, Other)
  Sender: FDA-Public Use
  Company Number: DE-SA-2016SA180348

PATIENT
  Age: 49 Year
  Sex: Female
  Weight: 70 kg

DRUGS (8)
  1. TAVEGIL [CLEMASTINE] [Concomitant]
     Dosage: 2 MG,UNK
     Route: 042
     Dates: start: 20160922, end: 20160926
  2. RANITIDINE. [Concomitant]
     Active Substance: RANITIDINE
     Dosage: 50 MG,UNK
     Route: 042
     Dates: start: 20160922, end: 20160926
  3. ALEMTUZUMAB [Suspect]
     Active Substance: ALEMTUZUMAB
     Dosage: 12 MG,QD
     Route: 041
     Dates: start: 20160922, end: 20160926
  4. PERFALGAN [Concomitant]
     Active Substance: ACETAMINOPHEN
     Dosage: 1 G,UNK
     Route: 042
     Dates: start: 20160922, end: 20160926
  5. ACICLOVIR [Concomitant]
     Active Substance: ACYCLOVIR
     Dosage: 200 MG,UNK
     Route: 048
     Dates: start: 20160922, end: 20160926
  6. ALEMTUZUMAB [Suspect]
     Active Substance: ALEMTUZUMAB
     Indication: MULTIPLE SCLEROSIS
     Dosage: 12 MG,QD
     Route: 041
     Dates: start: 20160922, end: 20160926
  7. URBASON [METHYLPREDNISOLONE] [Concomitant]
     Dosage: 1000 MG,UNK
     Route: 042
     Dates: start: 20160922, end: 20160926
  8. PANTOPRAZOLE [Concomitant]
     Active Substance: PANTOPRAZOLE
     Dosage: 40 MG,UNK
     Route: 048
     Dates: start: 20160922, end: 20160926

REACTIONS (14)
  - Pneumonia [Recovering/Resolving]
  - Back pain [Recovered/Resolved]
  - Nasopharyngitis [Recovered/Resolved]
  - Pulmonary oedema [Unknown]
  - Fatigue [Recovering/Resolving]
  - Musculoskeletal disorder [Not Recovered/Not Resolved]
  - Dyspnoea [Recovering/Resolving]
  - White blood cell count decreased [Unknown]
  - Anxiety [Unknown]
  - Pleural effusion [Recovered/Resolved]
  - Breath sounds abnormal [Not Recovered/Not Resolved]
  - Oropharyngeal pain [Recovered/Resolved]
  - Pulmonary oedema [Not Recovered/Not Resolved]
  - Cough [Not Recovered/Not Resolved]

NARRATIVE: CASE EVENT DATE: 20160926
